FAERS Safety Report 20086444 (Version 1)
Quarter: 2021Q4

REPORT INFORMATION
  Report Type: Spontaneous
  Country: US (occurrence: US)
  Receive Date: 20211118
  Receipt Date: 20211118
  Transmission Date: 20220303
  Serious: Yes (Other)
  Sender: FDA-Public Use
  Company Number: US-PFIZER INC-202101552897

PATIENT
  Age: 37 Year
  Sex: Female

DRUGS (1)
  1. BOSULIF [Suspect]
     Active Substance: BOSUTINIB MONOHYDRATE
     Dosage: 300 MG, DAILY
     Route: 048
     Dates: start: 201307, end: 20211028

REACTIONS (5)
  - Cystitis haemorrhagic [Unknown]
  - Anaemia [Unknown]
  - Keratitis [Unknown]
  - Blood urine present [Recovered/Resolved]
  - Dysuria [Unknown]
